FAERS Safety Report 22081539 (Version 1)
Quarter: 2023Q1

REPORT INFORMATION
  Report Type: Report from Study
  Country: US (occurrence: US)
  Receive Date: 20230310
  Receipt Date: 20230310
  Transmission Date: 20230417
  Serious: Yes (Hospitalization)
  Sender: FDA-Public Use
  Company Number: US-ABBVIE-4334484

PATIENT
  Sex: Female

DRUGS (8)
  1. VENCLEXTA [Suspect]
     Active Substance: VENETOCLAX
     Indication: Acute myeloid leukaemia
     Route: 048
  2. Metoprolol Tartrate Oral Tablet 50 mg [Concomitant]
     Indication: Product used for unknown indication
     Route: 048
  3. PANTOPRAZOLE SODIUM [Concomitant]
     Active Substance: PANTOPRAZOLE SODIUM
     Indication: Product used for unknown indication
  4. Fluconazole Oral Tablet 200 MG [Concomitant]
     Indication: Product used for unknown indication
     Route: 048
  5. Colchicine Oral Capsule 0.6 MG [Concomitant]
     Indication: Product used for unknown indication
     Route: 048
  6. Valtrex Oral Tablet 1 GM [Concomitant]
     Indication: Product used for unknown indication
     Dosage: DOSAGE: 1 GM
     Route: 048
  7. Allopurinol Oral Tablet 100 MG [Concomitant]
     Indication: Product used for unknown indication
     Route: 048
  8. Multivitamin Gummies [Concomitant]
     Indication: Product used for unknown indication

REACTIONS (1)
  - Hospice care [Not Recovered/Not Resolved]
